FAERS Safety Report 8329329-1 (Version None)
Quarter: 2012Q2

REPORT INFORMATION
  Report Type: 
  Country: None (occurrence: None)
  Receive Date: 20120502
  Receipt Date: 20110721
  Transmission Date: 20120825
  Serious: No
  Sender: FDA-Public Use
  Company Number: US-ASTRAZENECA-2011SE45300

PATIENT
  Sex: Female

DRUGS (3)
  1. FASLODEX [Suspect]
     Route: 030
  2. FASLODEX [Suspect]
     Route: 030
  3. FASLODEX [Suspect]
     Route: 030

REACTIONS (2)
  - ARTHRALGIA [None]
  - BLOOD PRESSURE INCREASED [None]
